FAERS Safety Report 11510798 (Version 1)
Quarter: 2015Q3

REPORT INFORMATION
  Report Type: Spontaneous
  Country: FR (occurrence: FR)
  Receive Date: 20150915
  Receipt Date: 20150915
  Transmission Date: 20151125
  Serious: Yes (Hospitalization)
  Sender: FDA-Public Use
  Company Number: FR-PFIZER INC-2015301075

PATIENT
  Age: 85 Year
  Sex: Male

DRUGS (5)
  1. OXYNORM [Suspect]
     Active Substance: OXYCODONE HYDROCHLORIDE
     Indication: NECK PAIN
     Dosage: 5 MG, AS NEEDED
     Route: 048
     Dates: start: 20150612, end: 20150617
  2. VALSARTAN/HYDROCHLOROTHIAZIDE MYLAN [Concomitant]
     Active Substance: HYDROCHLOROTHIAZIDE\VALSARTAN
     Dosage: UNK
  3. LYRICA [Suspect]
     Active Substance: PREGABALIN
     Indication: NECK PAIN
     Dosage: 300 MG, 1X/DAY
     Route: 048
     Dates: start: 20150617, end: 20150617
  4. PREDNISOLONE. [Suspect]
     Active Substance: PREDNISOLONE
     Indication: NECK PAIN
     Dosage: 40 MG, 1X/DAY
     Route: 048
     Dates: start: 20150617, end: 20150617
  5. OXYCONTIN [Suspect]
     Active Substance: OXYCODONE HYDROCHLORIDE
     Indication: NECK PAIN
     Dosage: 10 MG, 2X/DAY
     Route: 048
     Dates: start: 20150612, end: 20150617

REACTIONS (5)
  - Intentional product misuse [Unknown]
  - Vertigo [Recovered/Resolved]
  - Dizziness [Recovered/Resolved]
  - Malaise [Recovered/Resolved]
  - Movement disorder [Recovered/Resolved]

NARRATIVE: CASE EVENT DATE: 20150617
